FAERS Safety Report 18011721 (Version 1)
Quarter: 2020Q3

REPORT INFORMATION
  Report Type: Spontaneous
  Country: IT (occurrence: IT)
  Receive Date: 20200713
  Receipt Date: 20200713
  Transmission Date: 20201103
  Serious: Yes (Hospitalization)
  Sender: FDA-Public Use
  Company Number: IT-BAXTER-2020BAX013877

PATIENT
  Age: 40 Year
  Sex: Male
  Weight: 71 kg

DRUGS (1)
  1. ENDOXAN BAXTER [Suspect]
     Active Substance: CYCLOPHOSPHAMIDE
     Indication: CHRONIC MYELOID LEUKAEMIA
     Route: 042
     Dates: start: 20200429, end: 20200512

REACTIONS (2)
  - Cystitis haemorrhagic [Recovering/Resolving]
  - Skin reaction [Recovering/Resolving]

NARRATIVE: CASE EVENT DATE: 20200512
